FAERS Safety Report 9410245 (Version 1)
Quarter: 2013Q3

REPORT INFORMATION
  Report Type: Report from Study
  Country: DE (occurrence: DE)
  Receive Date: 20130719
  Receipt Date: 20130719
  Transmission Date: 20140515
  Serious: Yes (Hospitalization)
  Sender: FDA-Public Use
  Company Number: DE-UCBSA-091443

PATIENT
  Age: 77 Year
  Sex: Female
  Weight: 67 kg

DRUGS (8)
  1. NEUPRO [Suspect]
     Indication: PARKINSON^S DISEASE
     Dates: start: 20110513
  2. NEUPRO [Suspect]
     Indication: PARKINSON^S DISEASE
     Dates: start: 20110509, end: 20110512
  3. NEUPRO [Suspect]
     Indication: PARKINSON^S DISEASE
     Dates: start: 20110303, end: 20110508
  4. NEUPRO [Suspect]
     Indication: PARKINSON^S DISEASE
     Dates: start: 20110224, end: 20110302
  5. NEUPRO [Suspect]
     Indication: PARKINSON^S DISEASE
     Dates: start: 20110217, end: 20110223
  6. NEUPRO [Suspect]
     Indication: PARKINSON^S DISEASE
     Dates: start: 20110210, end: 20110216
  7. BISOPROLOL [Concomitant]
     Indication: HYPERTENSION
     Dates: start: 200806
  8. RAMIPRIL [Concomitant]
     Indication: HYPERTENSION
     Dates: start: 20110119

REACTIONS (1)
  - Acetabulum fracture [Recovered/Resolved]
